FAERS Safety Report 9495885 (Version 1)
Quarter: 2013Q3

REPORT INFORMATION
  Report Type: Spontaneous
  Country: US (occurrence: US)
  Receive Date: 20130903
  Receipt Date: 20130903
  Transmission Date: 20140515
  Serious: Yes (Other)
  Sender: FDA-Public Use
  Company Number: US-ASTRAZENECA-2013SE65877

PATIENT
  Sex: 0

DRUGS (16)
  1. NEXIUM [Suspect]
     Indication: GASTROOESOPHAGEAL REFLUX DISEASE
     Route: 048
     Dates: start: 2007, end: 2011
  2. PRILOSEC [Suspect]
     Indication: GASTROOESOPHAGEAL REFLUX DISEASE
     Route: 048
     Dates: start: 2011
  3. PRILOSEC [Suspect]
     Indication: GASTROOESOPHAGEAL REFLUX DISEASE
     Route: 048
     Dates: start: 2011
  4. LISINOPRIL [Suspect]
     Indication: BLOOD PRESSURE ABNORMAL
     Route: 048
     Dates: start: 2008
  5. ASPIRIN [Concomitant]
     Indication: PROPHYLAXIS
     Dates: start: 2008
  6. MIRILAX [Concomitant]
     Indication: CONSTIPATION
  7. SINEMET [Concomitant]
     Indication: PARKINSON^S DISEASE
     Dosage: 25/100 1 DF EVERY TWO HOURS
  8. BACTIM [Concomitant]
     Indication: URINARY TRACT INFECTION
     Dosage: THREE TIMES A WEEK
  9. DUO-NEB [Concomitant]
     Indication: PROPHYLAXIS
     Dosage: EVERY FOUR HOURS
  10. ACETAMENOPHIN [Concomitant]
     Dosage: AS REQUIRED
  11. ATROPINE [Concomitant]
     Indication: SALIVARY HYPERSECRETION
  12. ATROVENT [Concomitant]
     Dosage: EVERY FOUR HOURS
  13. GUAFINESSIN [Concomitant]
  14. KEPPRA [Concomitant]
     Indication: CONVULSION
  15. POTASSIUM [Concomitant]
     Indication: SUPPLEMENTATION THERAPY
  16. ZOFRAN [Concomitant]
     Indication: VOMITING

REACTIONS (7)
  - Convulsion [Unknown]
  - Sepsis [Unknown]
  - Femur fracture [Unknown]
  - Parkinson^s disease [Unknown]
  - Blood pressure abnormal [Unknown]
  - Vomiting [Unknown]
  - Intentional drug misuse [Unknown]
